FAERS Safety Report 14642205 (Version 1)
Quarter: 2018Q1

REPORT INFORMATION
  Report Type: Spontaneous
  Country: US (occurrence: US)
  Receive Date: 20180315
  Receipt Date: 20180315
  Transmission Date: 20180509
  Serious: Yes (Hospitalization)
  Sender: FDA-Public Use
  Company Number: None

PATIENT
  Age: 22 Month
  Sex: Male
  Weight: 10.3 kg

DRUGS (2)
  1. TRIMETHOPRIM/SULFAMETHOXAZOLE [Suspect]
     Active Substance: SULFAMETHOXAZOLE\TRIMETHOPRIM
     Indication: STENOTROPHOMONAS TEST POSITIVE
     Route: 048
     Dates: start: 20180302, end: 20180312
  2. TRIMETHOPRIM/SULFAMETHOXAZOLE [Suspect]
     Active Substance: SULFAMETHOXAZOLE\TRIMETHOPRIM
     Indication: ASPIRATION TRACHEAL
     Route: 048
     Dates: start: 20180302, end: 20180312

REACTIONS (2)
  - Irritability [None]
  - Pyrexia [None]

NARRATIVE: CASE EVENT DATE: 20180303
